FAERS Safety Report 10149403 (Version 5)
Quarter: 2014Q4

REPORT INFORMATION
  Report Type: Report from Study
  Country: IT (occurrence: None)
  Receive Date: 20140430
  Receipt Date: 20141126
  Transmission Date: 20150528
  Serious: Yes (Death, Hospitalization)
  Sender: FDA-Public Use
  Company Number: 2014STPI000166

PATIENT
  Age: 76 Year
  Sex: Male

DRUGS (10)
  1. LEUCINE (LEUCINE) [Concomitant]
  2. LACTULOSE (LACTULOSE) [Concomitant]
     Active Substance: LACTULOSE
  3. REBAMIPIDE (REBAMIPIDE) (TABLET) [Concomitant]
     Active Substance: REBAMIPIDE
  4. FAMOTIDINE (FAMOTIDINE) [Concomitant]
     Active Substance: FAMOTIDINE
  5. CARNITOR [Suspect]
     Active Substance: LEVOCARNITINE
     Indication: CARNITINE DEFICIENCY
     Route: 048
     Dates: start: 20140328, end: 20140421
  6. AMLODIPINE BESILATE (AMLODIPINE BESILATE) [Concomitant]
     Active Substance: AMLODIPINE BESYLATE
  7. ISOLEUCINE (ISOLEUCINE) [Concomitant]
  8. TAMSULOSIN (TAMSULOSIN) [Concomitant]
     Active Substance: TAMSULOSIN
  9. MIRABEGRON (MIRABEGRON) [Concomitant]
  10. VALINE (VALINE) [Concomitant]

REACTIONS (5)
  - Fracture [None]
  - Femur fracture [None]
  - Accident [None]
  - Encephalopathy [None]
  - Fall [None]

NARRATIVE: CASE EVENT DATE: 201404
